FAERS Safety Report 8957563 (Version 2)
Quarter: 2012Q4

REPORT INFORMATION
  Report Type: Report from Study
  Country: CA (occurrence: CA)
  Receive Date: 20121211
  Receipt Date: 20121221
  Transmission Date: 20130627
  Serious: Yes (Death)
  Sender: FDA-Public Use
  Company Number: CA-CELGENEUS-028-C5013-12120519

PATIENT
  Age: 82 Year
  Sex: Male
  Weight: 77 kg

DRUGS (7)
  1. CC-5013 [Suspect]
     Indication: CLL
     Dosage: 2.5 Milligram
     Route: 048
     Dates: start: 20120704
  2. CC-5013 [Suspect]
     Dosage: 1.25 Milligram
     Route: 048
     Dates: start: 20121105
  3. IRBESARTAN [Concomitant]
     Indication: HYPERTENSION
     Dosage: 300 Milligram
     Route: 048
     Dates: start: 20080422
  4. ASPIRIN [Concomitant]
     Indication: PROPHYLACTIC
     Dosage: 325 Milligram
     Route: 048
     Dates: start: 20110704
  5. RANITIDINE [Concomitant]
     Indication: GASTROESOPHAGEAL REFLUX
     Dosage: 600 Milligram
     Route: 048
     Dates: start: 201006
  6. NEULASTA [Concomitant]
     Indication: WBC INCREASED
     Dosage: .2857 Milligram
     Route: 058
     Dates: start: 20110826
  7. SUPRAX [Concomitant]
     Indication: PHARYNGITIS
     Dosage: 200 Milligram
     Route: 048
     Dates: start: 201212

REACTIONS (1)
  - Cardiac arrest [Fatal]
